FAERS Safety Report 4660396-2 (Version None)
Quarter: 2005Q2

REPORT INFORMATION
  Report Type: 
  Country: None (occurrence: None)
  Receive Date: 20050512
  Receipt Date: 20050503
  Transmission Date: 20051028
  Serious: Yes (Hospitalization)
  Sender: FDA-Public Use
  Company Number: DE-SANOFI-SYNTHELABO-A01200502988

PATIENT
  Sex: Male

DRUGS (4)
  1. CLOPIDOGREL BISULFATE [Suspect]
     Indication: MICROANGIOPATHY
     Route: 048
     Dates: start: 20041201, end: 20050401
  2. CLOPIDOGREL BISULFATE [Suspect]
     Indication: CEREBROVASCULAR ACCIDENT
     Route: 048
     Dates: start: 20041201, end: 20050401
  3. ASS 100/300 [Suspect]
     Indication: MICROANGIOPATHY
     Route: 048
     Dates: start: 19990401, end: 20041201
  4. ASS 100/300 [Suspect]
     Indication: CEREBROVASCULAR ACCIDENT
     Route: 048
     Dates: start: 19990401, end: 20041201

REACTIONS (2)
  - PRURITUS [None]
  - SKIN LESION [None]
